FAERS Safety Report 10453823 (Version 1)
Quarter: 2014Q3

REPORT INFORMATION
  Report Type: Spontaneous
  Country: US (occurrence: US)
  Receive Date: 20140915
  Receipt Date: 20140915
  Transmission Date: 20150326
  Serious: No
  Sender: FDA-Public Use
  Company Number: US-BRISTOL-MYERS SQUIBB COMPANY-21295779

PATIENT
  Age: 72 Year
  Sex: Male
  Weight: 72.56 kg

DRUGS (5)
  1. ELIQUIS [Suspect]
     Active Substance: APIXABAN
     Indication: CEREBROVASCULAR ACCIDENT PROPHYLAXIS
     Dates: start: 201407
  2. POTASSIUM [Concomitant]
     Active Substance: POTASSIUM
  3. BABY ASPIRIN [Concomitant]
     Active Substance: ASPIRIN
  4. ZINC [Concomitant]
     Active Substance: ZINC\ZINC CHLORIDE
  5. VITAMIN D [Concomitant]
     Active Substance: CHOLECALCIFEROL

REACTIONS (1)
  - Alopecia [Unknown]
